FAERS Safety Report 6238090-6 (Version None)
Quarter: 2009Q2

REPORT INFORMATION
  Report Type: 
  Country: None (occurrence: None)
  Receive Date: 20090617
  Receipt Date: 20090608
  Transmission Date: 20091009
  Serious: Yes (Life-Threatening, Hospitalization)
  Sender: FDA-Public Use
  Company Number: ADR3432009

PATIENT
  Age: 77 Year
  Sex: Male

DRUGS (15)
  1. SIMVASTATIN [Suspect]
     Indication: HYPERLIPIDAEMIA
     Dosage: 20 MG, ORAL
     Route: 048
     Dates: end: 20080306
  2. PREDNISOLONE [Concomitant]
  3. ACETYLSALICYLIC ACID 100 MG [Concomitant]
  4. FALITHROM               (PHENPROCOUMON) [Concomitant]
  5. HYDROCHLOROTHIAZIDE 25 MG [Concomitant]
  6. SPIRONOLACTONE [Concomitant]
  7. MAGALDRATE 1600 MG [Concomitant]
  8. PANTOZOL 40 MG [Concomitant]
  9. BISOPROLOL 5 MG [Concomitant]
  10. RAMIPRIL [Concomitant]
  11. DIGITOXIN 0.07 MG [Concomitant]
  12. ACTRAPID PENFILL (INSULIN) [Concomitant]
  13. MOLSIDOMINE 8 MG [Concomitant]
  14. ISOSORBIDE MONONITRATE 50 MG [Concomitant]
  15. ALLOPURINOL [Concomitant]

REACTIONS (3)
  - DRUG INTERACTION [None]
  - GASTRITIS EROSIVE [None]
  - GASTROINTESTINAL HAEMORRHAGE [None]
